FAERS Safety Report 5124760-X (Version None)
Quarter: 2006Q4

REPORT INFORMATION
  Report Type: 
  Country: None (occurrence: None)
  Receive Date: 20061006
  Receipt Date: 20060926
  Transmission Date: 20070319
  Serious: Yes (Death)
  Sender: FDA-Public Use
  Company Number: HQWYE247627SEP06

PATIENT
  Age: 40 Year
  Sex: Female

DRUGS (2)
  1. PREMARIN [Suspect]
     Indication: OESTROGEN REPLACEMENT THERAPY
     Dosage: UNSPECIFIED;
     Dates: start: 19980101
  2. CONJUGATED ESTROGENS//MEDROXYPROGESTERONE ACETATE (CONJUGATED ESTROGEN [Suspect]
     Indication: OESTROGEN REPLACEMENT THERAPY
     Dosage: 0.625 MG CONJUGATED ESTROGEN PLUS 2.5 MG OF MEDROXYPROGESTERONE ACETATE, UNSPECIFIED FREQUENCY
     Dates: start: 19980101

REACTIONS (6)
  - DRUG INEFFECTIVE [None]
  - ENDOMETRIAL CANCER METASTATIC [None]
  - LIPID METABOLISM DISORDER [None]
  - METASTASES TO BONE [None]
  - METASTASES TO LIVER [None]
  - METASTASES TO LYMPH NODES [None]
